FAERS Safety Report 8875147 (Version 2)
Quarter: 2012Q4

REPORT INFORMATION
  Report Type: 
  Country: US (occurrence: US)
  Receive Date: 20121029
  Receipt Date: 20121126
  Transmission Date: 20130627
  Serious: No
  Sender: FDA-Public Use
  Company Number: US-PFIZER INC-2012264498

PATIENT
  Age: 71 Year
  Sex: Female
  Weight: 50 kg

DRUGS (1)
  1. ESTRING [Suspect]
     Indication: VAGINAL DRYNESS
     Dosage: 2 mg, every 3 months
     Route: 067
     Dates: start: 20121004, end: 20121004

REACTIONS (3)
  - Poor quality drug administered [Unknown]
  - Pain [Unknown]
  - Discomfort [Unknown]
